FAERS Safety Report 14753658 (Version 6)
Quarter: 2020Q1

REPORT INFORMATION
  Report Type: Report from Study
  Country: US (occurrence: US)
  Receive Date: 20180412
  Receipt Date: 20200207
  Transmission Date: 20200409
  Serious: Yes (Other)
  Sender: FDA-Public Use
  Company Number: PHEH2018US013129

PATIENT
  Age: 49 Year
  Sex: Female
  Weight: 94.3 kg

DRUGS (7)
  1. GILENYA [Suspect]
     Active Substance: FINGOLIMOD HYDROCHLORIDE
     Indication: MULTIPLE SCLEROSIS
     Dosage: 0.5 MG, QD
     Route: 048
     Dates: start: 20171003, end: 20180404
  2. ZYRTEC [Concomitant]
     Active Substance: CETIRIZINE HYDROCHLORIDE
     Indication: HYPERSENSITIVITY
     Dosage: UNK
     Route: 048
  3. GILENYA [Suspect]
     Active Substance: FINGOLIMOD HYDROCHLORIDE
     Dosage: UNK
     Route: 048
     Dates: start: 201811
  4. GILENYA [Suspect]
     Active Substance: FINGOLIMOD HYDROCHLORIDE
     Dosage: 0.5 MG, QD
     Route: 048
     Dates: start: 20190103
  5. VALSARTAN. [Concomitant]
     Active Substance: VALSARTAN
     Indication: PRODUCT USED FOR UNKNOWN INDICATION
     Dosage: UNK
     Route: 048
  6. VITAMIN D [Concomitant]
     Active Substance: VITAMIN D NOS
     Indication: PRODUCT USED FOR UNKNOWN INDICATION
     Dosage: 50000 OT, QW
     Route: 048
  7. CARAFATE [Concomitant]
     Active Substance: SUCRALFATE
     Indication: PRODUCT USED FOR UNKNOWN INDICATION
     Dosage: UNK
     Route: 065

REACTIONS (24)
  - White blood cell count decreased [Unknown]
  - Blood glucose increased [Unknown]
  - Lymphadenopathy [Unknown]
  - Intervertebral disc degeneration [Unknown]
  - Breast cancer stage II [Recovered/Resolved]
  - Pulmonary valve incompetence [Unknown]
  - Breast cancer female [Unknown]
  - Incontinence [Unknown]
  - Pruritus [Unknown]
  - Monocyte count increased [Unknown]
  - Vertigo [Unknown]
  - Visual impairment [Unknown]
  - Breast mass [Unknown]
  - Abdominal pain [Unknown]
  - Cognitive disorder [Unknown]
  - Dizziness [Unknown]
  - Intraductal proliferative breast lesion [Unknown]
  - Breast cancer metastatic [Unknown]
  - Breast pain [Unknown]
  - Extragonadal primary germ cell tumour [Unknown]
  - Confusional state [Unknown]
  - Multiple sclerosis [Unknown]
  - Lymphocyte count decreased [Unknown]
  - Gastritis [Unknown]

NARRATIVE: CASE EVENT DATE: 20181212
